FAERS Safety Report 20236079 (Version 1)
Quarter: 2021Q4

REPORT INFORMATION
  Report Type: Spontaneous
  Country: CA (occurrence: CA)
  Receive Date: 20211228
  Receipt Date: 20211228
  Transmission Date: 20220303
  Serious: Yes (Other)
  Sender: FDA-Public Use
  Company Number: CA-DENTSPLY-2021SCDP000371

PATIENT

DRUGS (1)
  1. LIDOCAINE [Suspect]
     Active Substance: LIDOCAINE
     Indication: Autonomic dysreflexia
     Dosage: UNK LUBRICANT
     Route: 061

REACTIONS (6)
  - Arrhythmia [Unknown]
  - Autonomic dysreflexia [Unknown]
  - Condition aggravated [Unknown]
  - Dyschezia [Unknown]
  - Defaecation disorder [Unknown]
  - Drug ineffective [Unknown]
